FAERS Safety Report 5431928-1 (Version None)
Quarter: 2007Q3

REPORT INFORMATION
  Report Type: 
  Country: None (occurrence: None)
  Receive Date: 20070731
  Receipt Date: 20070516
  Transmission Date: 20080115
  Serious: No
  Sender: FDA-Public Use
  Company Number: US200705004442

PATIENT
  Age: 52 Year
  Sex: Female

DRUGS (8)
  1. BYETTA [Suspect]
     Indication: TYPE 2 DIABETES MELLITUS
     Dosage: 5 UG, 2/D, SUBCUTANEOUS
     Route: 058
     Dates: start: 20070515
  2. GLUCOPHAGE [Concomitant]
  3. NOVOLOG [Concomitant]
  4. LANTUS [Concomitant]
  5. ACTOS [Concomitant]
  6. ASPIRIN [Concomitant]
  7. RISPERDAL [Concomitant]
  8. ZOLOFT [Concomitant]

REACTIONS (6)
  - BLOOD GLUCOSE DECREASED [None]
  - EARLY SATIETY [None]
  - INJECTION SITE ERYTHEMA [None]
  - INJECTION SITE HAEMORRHAGE [None]
  - NAUSEA [None]
  - SOMNOLENCE [None]
